FAERS Safety Report 8063125-8 (Version None)
Quarter: 2012Q1

REPORT INFORMATION
  Report Type: 
  Country: None (occurrence: None)
  Receive Date: 20120117
  Receipt Date: 20120103
  Transmission Date: 20120608
  Serious: Yes (Hospitalization)
  Sender: FDA-Public Use
  Company Number: 2011315936

PATIENT
  Age: 65 Year
  Sex: Male
  Weight: 100 kg

DRUGS (13)
  1. KEPPRA [Concomitant]
  2. ONDANSETRON HYDROCHLORIDE [Concomitant]
  3. SYNTHROID [Concomitant]
  4. DECADRON [Concomitant]
  5. DALTEPARIN SODIUM (DALTEPARIN SODIUM) UNKNOWN [Suspect]
     Indication: DEEP VEIN THROMBOSIS
     Dosage: 18000,15000 SUBCUTANEOUS
     Route: 058
     Dates: start: 20110719
  6. DALTEPARIN SODIUM (DALTEPARIN SODIUM) UNKNOWN [Suspect]
     Indication: DEEP VEIN THROMBOSIS
     Dosage: 18000,15000 SUBCUTANEOUS
     Route: 058
     Dates: start: 20110215, end: 20110715
  7. DALTEPARIN SODIUM (DALTEPARIN SODIUM) UNKNOWN [Suspect]
     Indication: DEEP VEIN THROMBOSIS
     Dosage: 18000,15000 SUBCUTANEOUS
     Route: 058
     Dates: start: 20110718, end: 20110718
  8. NYSTATIN [Concomitant]
  9. SEROQUEL [Concomitant]
  10. COLACE (DOCUSATE SODIUM) [Concomitant]
  11. AVASTIN [Concomitant]
  12. TRIAMCINOLONE [Concomitant]
  13. RITALIN TAB [Concomitant]

REACTIONS (4)
  - CHEST PAIN [None]
  - GASTROOESOPHAGEAL REFLUX DISEASE [None]
  - DYSPNOEA [None]
  - HYPOTENSION [None]
